FAERS Safety Report 16992779 (Version 1)
Quarter: 2019Q4

REPORT INFORMATION
  Report Type: Spontaneous
  Country: US (occurrence: US)
  Receive Date: 20190923
  Receipt Date: 20190923
  Transmission Date: 20200122
  Serious: No
  Sender: FDA-Public Use
  Company Number: None

PATIENT
  Age: 82 Year
  Sex: Female

DRUGS (1)
  1. KISQALI [Suspect]
     Active Substance: RIBOCICLIB
     Route: 048
     Dates: start: 20190903, end: 20190923

REACTIONS (4)
  - Speech disorder [None]
  - Headache [None]
  - Transient ischaemic attack [None]
  - Vomiting [None]

NARRATIVE: CASE EVENT DATE: 20190923
